FAERS Safety Report 15109708 (Version 2)
Quarter: 2018Q3

REPORT INFORMATION
  Report Type: Spontaneous
  Country: CA (occurrence: CA)
  Receive Date: 20180705
  Receipt Date: 20180831
  Transmission Date: 20181010
  Serious: Yes (Other)
  Sender: FDA-Public Use
  Company Number: CA-GLAXOSMITHKLINE-CA2017GSK108151

PATIENT
  Age: 30 Year
  Sex: Female
  Weight: 46 kg

DRUGS (7)
  1. PLAQUENIL [Concomitant]
     Active Substance: HYDROXYCHLOROQUINE SULFATE
     Indication: PRODUCT USED FOR UNKNOWN INDICATION
     Dosage: 200 MG, QD
  2. BENLYSTA [Suspect]
     Active Substance: BELIMUMAB
     Dosage: 440 MG, Z
     Route: 042
  3. BENLYSTA [Suspect]
     Active Substance: BELIMUMAB
     Dosage: 440 MG, Z
     Route: 042
  4. CELLCEPT [Concomitant]
     Active Substance: MYCOPHENOLATE MOFETIL\MYCOPHENOLATE MOFETIL HYDROCHLORIDE
     Indication: PRODUCT USED FOR UNKNOWN INDICATION
     Dosage: UNK
  5. PREDNISONE. [Concomitant]
     Active Substance: PREDNISONE
     Indication: PRODUCT USED FOR UNKNOWN INDICATION
     Dosage: 2 MG, 1D
  6. BENLYSTA [Suspect]
     Active Substance: BELIMUMAB
     Indication: SYSTEMIC LUPUS ERYTHEMATOSUS
     Dosage: 440 MG, Z
     Route: 042
     Dates: start: 20160412
  7. BENLYSTA [Suspect]
     Active Substance: BELIMUMAB
     Dosage: 440 MG, Z
     Route: 042

REACTIONS (10)
  - Tooth disorder [Recovered/Resolved]
  - Nasopharyngitis [Recovered/Resolved]
  - White blood cell count decreased [Not Recovered/Not Resolved]
  - Rash pruritic [Unknown]
  - Malaise [Unknown]
  - Inflammatory marker decreased [Not Recovered/Not Resolved]
  - Systemic lupus erythematosus [Unknown]
  - Oropharyngeal pain [Recovered/Resolved]
  - Double stranded DNA antibody positive [Not Recovered/Not Resolved]
  - Rash [Not Recovered/Not Resolved]

NARRATIVE: CASE EVENT DATE: 20170927
